FAERS Safety Report 24578305 (Version 3)
Quarter: 2025Q1

REPORT INFORMATION
  Report Type: Spontaneous
  Country: GB (occurrence: GB)
  Receive Date: 20241105
  Receipt Date: 20250224
  Transmission Date: 20250409
  Serious: Yes (Hospitalization)
  Sender: AMGEN
  Company Number: GB-Vifor (International) Inc.-VIT-2024-09869

PATIENT
  Age: 72 Year
  Sex: Male

DRUGS (12)
  1. TAVNEOS [Suspect]
     Active Substance: AVACOPAN
     Indication: Anti-neutrophil cytoplasmic antibody positive vasculitis
     Dosage: 30 MG, BID
     Route: 048
     Dates: start: 20240824
  2. HUMAN PLASMA [Concomitant]
     Active Substance: HUMAN PLASMA
     Indication: Anti-neutrophil cytoplasmic antibody positive vasculitis
     Route: 065
     Dates: start: 20240924, end: 20240924
  3. HUMAN PLASMA [Concomitant]
     Active Substance: HUMAN PLASMA
     Dates: start: 20240926, end: 20240926
  4. HUMAN PLASMA [Concomitant]
     Active Substance: HUMAN PLASMA
     Dates: start: 20240930, end: 20240930
  5. HUMAN PLASMA [Concomitant]
     Active Substance: HUMAN PLASMA
     Dates: start: 20241009, end: 20241009
  6. HUMAN PLASMA [Concomitant]
     Active Substance: HUMAN PLASMA
     Dates: start: 20241012, end: 20241012
  7. PREDNISOLONE [Concomitant]
     Active Substance: PREDNISOLONE
     Indication: Anti-neutrophil cytoplasmic antibody positive vasculitis
     Dosage: 60 MG, OD
     Route: 048
     Dates: start: 20240824, end: 20240828
  8. PREDNISOLONE [Concomitant]
     Active Substance: PREDNISOLONE
     Dosage: 40 MG, QD
     Route: 048
     Dates: start: 20240829, end: 20240902
  9. PREDNISOLONE [Concomitant]
     Active Substance: PREDNISOLONE
     Dosage: 20 MG, QD
     Route: 048
     Dates: start: 20240903, end: 20240907
  10. PREDNISOLONE [Concomitant]
     Active Substance: PREDNISOLONE
     Dosage: 10 MG, QD
     Route: 048
     Dates: start: 20240908
  11. CYCLOPHOSPHAMIDE [Concomitant]
     Active Substance: CYCLOPHOSPHAMIDE
     Indication: Anti-neutrophil cytoplasmic antibody positive vasculitis
     Route: 042
     Dates: start: 20240823, end: 20240920
  12. METHYLPREDNISOLONE [Concomitant]
     Active Substance: METHYLPREDNISOLONE
     Indication: Anti-neutrophil cytoplasmic antibody positive vasculitis
     Dosage: 500 MG, OD
     Route: 042
     Dates: start: 20240820, end: 20240822

REACTIONS (5)
  - Rash [Recovered/Resolved]
  - Rash [Unknown]
  - Oedema peripheral [Recovered/Resolved]
  - Dysgeusia [Unknown]
  - Parosmia [Unknown]

NARRATIVE: CASE EVENT DATE: 20240829
